FAERS Safety Report 5423831-8 (Version None)
Quarter: 2007Q3

REPORT INFORMATION
  Report Type: 
  Country: None (occurrence: None)
  Receive Date: 20070823
  Receipt Date: 20070822
  Transmission Date: 20080115
  Serious: Yes (Hospitalization)
  Sender: FDA-Public Use
  Company Number: CS-BRISTOL-MYERS SQUIBB COMPANY-13885439

PATIENT
  Sex: Female

DRUGS (2)
  1. TAXOL [Suspect]
     Indication: BREAST CANCER
     Route: 042
     Dates: start: 20070717, end: 20070717
  2. CORTICOSTEROID [Concomitant]
     Indication: PREMEDICATION

REACTIONS (5)
  - DYSPNOEA [None]
  - ERYTHEMA [None]
  - PALPITATIONS [None]
  - TACHYCARDIA [None]
  - TREMOR [None]
